FAERS Safety Report 22236678 (Version 1)
Quarter: 2023Q2

REPORT INFORMATION
  Report Type: Spontaneous
  Country: US (occurrence: US)
  Receive Date: 20230420
  Receipt Date: 20230420
  Transmission Date: 20230721
  Serious: No
  Sender: FDA-Public Use
  Company Number: US-ALLERGAN-2204644US

PATIENT
  Sex: Female

DRUGS (2)
  1. RESTASIS [Suspect]
     Active Substance: CYCLOSPORINE
     Indication: Dry eye
  2. Tear duct plugs [Concomitant]
     Indication: Product used for unknown indication

REACTIONS (2)
  - Intercepted product prescribing error [Unknown]
  - Vision blurred [Unknown]
